FAERS Safety Report 19251431 (Version 1)
Quarter: 2021Q2

REPORT INFORMATION
  Report Type: Other
  Country: FR (occurrence: FR)
  Receive Date: 20210512
  Receipt Date: 20210512
  Transmission Date: 20210717
  Serious: Yes (Hospitalization, Other)
  Sender: FDA-Public Use
  Company Number: FR-GE HEALTHCARE LIFE SCIENCES-2021CSU002324

PATIENT

DRUGS (16)
  1. MIDAZOLAM. [Suspect]
     Active Substance: MIDAZOLAM
     Indication: SEDATIVE THERAPY
     Dosage: 10 MG, ONCE PER HOUR
     Route: 042
     Dates: start: 20210221, end: 20210226
  2. PERFALGAN [Concomitant]
     Active Substance: ACETAMINOPHEN
  3. LOXEN [LOXOPROFEN SODIUM] [Concomitant]
     Active Substance: LOXOPROFEN SODIUM
  4. BISOPROLOL [Suspect]
     Active Substance: BISOPROLOL
     Indication: PRODUCT USED FOR UNKNOWN INDICATION
     Dosage: 2.5 MG, QD
     Route: 048
     Dates: start: 20210222, end: 20210222
  5. SUFENTANIL [Suspect]
     Active Substance: SUFENTANIL
     Indication: SEDATIVE THERAPY
     Dosage: 15 ?G, ONCE PER HOUR
     Route: 042
     Dates: start: 20210221, end: 20210226
  6. HUMALOG [Concomitant]
     Active Substance: INSULIN LISPRO
  7. FUROSEMIDE. [Suspect]
     Active Substance: FUROSEMIDE
     Indication: PRODUCT USED FOR UNKNOWN INDICATION
     Dosage: 40 MG, QD
     Route: 042
     Dates: start: 20210222, end: 20210222
  8. PANTOPRAZOLE [Suspect]
     Active Substance: PANTOPRAZOLE
     Indication: PRODUCT USED FOR UNKNOWN INDICATION
     Dosage: 40 MG, QD
     Route: 042
     Dates: start: 20210221, end: 20210221
  9. TAHOR [Concomitant]
     Active Substance: ATORVASTATIN CALCIUM
  10. KARDEGIC [Concomitant]
     Active Substance: ASPIRIN DL-LYSINE
  11. VISIPAQUE [Suspect]
     Active Substance: IODIXANOL
     Indication: ANGIOCARDIOGRAM
     Dosage: UNK UNK, SINGLE
     Route: 042
     Dates: start: 20210221, end: 20210221
  12. CISATRACURIUM. [Suspect]
     Active Substance: CISATRACURIUM
     Indication: SEDATIVE THERAPY
     Dosage: 10 MG, ONCE PER HOUR
     Route: 042
     Dates: start: 20210222, end: 20210223
  13. VISIPAQUE [Suspect]
     Active Substance: IODIXANOL
     Indication: PRODUCT USED FOR UNKNOWN INDICATION
  14. CLOPIDOGREL [Concomitant]
     Active Substance: CLOPIDOGREL BISULFATE
  15. DOBUTAMINE [Suspect]
     Active Substance: DOBUTAMINE HYDROCHLORIDE
     Indication: CARDIO-RESPIRATORY ARREST
     Dosage: 20.5 ?G/KG
     Route: 042
     Dates: start: 20210222, end: 20210227
  16. NORADRENALINE [Suspect]
     Active Substance: NOREPINEPHRINE
     Indication: CARDIO-RESPIRATORY ARREST
     Dosage: 1 MG, ONCE PER HOUR
     Route: 042
     Dates: start: 20210222, end: 20210227

REACTIONS (1)
  - Thrombocytopenia [Recovered/Resolved]

NARRATIVE: CASE EVENT DATE: 20210223
